FAERS Safety Report 7363496-1 (Version None)
Quarter: 2011Q1

REPORT INFORMATION
  Report Type: 
  Country: None (occurrence: None)
  Receive Date: 20110321
  Receipt Date: 20110221
  Transmission Date: 20110831
  Serious: No
  Sender: FDA-Public Use
  Company Number: US-B.I. PHARMACEUTICALS,INC./RIDGEFIELD-2011-BP-06466BP

PATIENT
  Sex: Male

DRUGS (6)
  1. FUROSEMIDE [Concomitant]
     Indication: CARDIAC DISORDER
  2. MULTAQ [Concomitant]
     Indication: CARDIAC DISORDER
     Dates: start: 20110101, end: 20110101
  3. ZOCOR [Concomitant]
     Indication: BLOOD CHOLESTEROL INCREASED
  4. PRADAXA [Suspect]
     Indication: ANTICOAGULANT THERAPY
     Dosage: 300 MG
     Route: 048
     Dates: start: 20110101
  5. ASPIRIN [Concomitant]
     Indication: PROPHYLAXIS
  6. METOPROLOL [Concomitant]
     Indication: HYPERTENSION

REACTIONS (5)
  - FEELING COLD [None]
  - DYSPEPSIA [None]
  - DYSPNOEA [None]
  - ASTHENIA [None]
  - FEELING HOT [None]
